FAERS Safety Report 23907092 (Version 1)
Quarter: 2024Q2

REPORT INFORMATION
  Report Type: Spontaneous
  Country: US (occurrence: US)
  Receive Date: 20240528
  Receipt Date: 20240528
  Transmission Date: 20240716
  Serious: Yes (Hospitalization)
  Sender: FDA-Public Use
  Company Number: US-AZURITY PHARMACEUTICALS, INC.-US-2024AZR000633

PATIENT
  Sex: Female
  Weight: 65.887 kg

DRUGS (1)
  1. XATMEP [Suspect]
     Active Substance: METHOTREXATE
     Indication: Acute lymphocytic leukaemia
     Dosage: TAKE 12 ML (30 MG), WEEKLY, DO NOT TAKE THE WEEK OF SPINAL TAP
     Route: 048

REACTIONS (1)
  - Hospitalisation [Unknown]
